FAERS Safety Report 25846952 (Version 3)
Quarter: 2025Q4

REPORT INFORMATION
  Report Type: Spontaneous
  Country: US (occurrence: US)
  Receive Date: 20250925
  Receipt Date: 20251105
  Transmission Date: 20260119
  Serious: Yes (Hospitalization, Other)
  Sender: SANOFI AVENTIS
  Company Number: US-SA-2025SA285884

PATIENT
  Age: 58 Year
  Sex: Female

DRUGS (1)
  1. DUPIXENT [Suspect]
     Active Substance: DUPILUMAB
     Dosage: 300 MG, QOW
     Route: 058

REACTIONS (11)
  - Anxiety [Unknown]
  - Psychotic disorder [Unknown]
  - Rash pruritic [Unknown]
  - Speech disorder [Unknown]
  - Weight decreased [Unknown]
  - Memory impairment [Unknown]
  - Dysphemia [Unknown]
  - Dysstasia [Unknown]
  - Feeding disorder [Unknown]
  - Stress [Unknown]
  - Drug ineffective [Unknown]
